FAERS Safety Report 6100761-X (Version None)
Quarter: 2009Q1

REPORT INFORMATION
  Report Type: 
  Country: None (occurrence: None)
  Receive Date: 20090303
  Receipt Date: 20090223
  Transmission Date: 20090719
  Serious: Yes (Death, Life-Threatening, Hospitalization, Other)
  Sender: FDA-Public Use
  Company Number: CA-ROXANE LABORATORIES, INC.-2009-RO-00185RO

PATIENT
  Age: 67 Year
  Sex: Male

DRUGS (13)
  1. DEXAMETHASONE [Suspect]
     Indication: OPTIC NEUROPATHY
     Dosage: 12MG
  2. FLUCONAZOLE [Suspect]
     Dosage: 400MG
     Route: 042
  3. CEFTRIAXONE [Suspect]
     Indication: MENINGITIS
     Dosage: 8G
     Route: 042
  4. CEFTRIAXONE [Suspect]
     Indication: ESCHERICHIA BACTERAEMIA
  5. AMPICILLIN [Suspect]
     Indication: MENINGITIS
     Dosage: 12G
     Route: 042
  6. AMPICILLIN [Suspect]
     Indication: ESCHERICHIA BACTERAEMIA
  7. CIPROFLOXACIN [Suspect]
     Indication: MENINGITIS
     Dosage: 1500MG
     Route: 048
  8. CIPROFLOXACIN [Suspect]
     Indication: ESCHERICHIA BACTERAEMIA
  9. HYDROCORTISONE ACETATE [Suspect]
     Dosage: 300MG
     Route: 042
  10. IMIPENEM AND CILASTATIN SODIUM [Suspect]
     Dosage: 2000MG
     Route: 042
  11. IVERMECTIN [Suspect]
     Indication: STRONGYLOIDIASIS
  12. IVERMECTIN [Suspect]
     Route: 058
  13. TPN [Concomitant]
     Route: 042

REACTIONS (11)
  - ASPERGILLOSIS [None]
  - CANDIDIASIS [None]
  - DEATH [None]
  - DEPRESSED LEVEL OF CONSCIOUSNESS [None]
  - ESCHERICHIA BACTERAEMIA [None]
  - HYPOALBUMINAEMIA [None]
  - INTESTINAL PERFORATION [None]
  - MENINGITIS [None]
  - MULTI-ORGAN FAILURE [None]
  - SEPTIC SHOCK [None]
  - STRONGYLOIDIASIS [None]
